FAERS Safety Report 5148378-8 (Version None)
Quarter: 2006Q4

REPORT INFORMATION
  Report Type: 
  Country: None (occurrence: None)
  Receive Date: 20061107
  Receipt Date: 20061025
  Transmission Date: 20070319
  Serious: Yes (Hospitalization, Other)
  Sender: FDA-Public Use
  Company Number: 2006SP005011

PATIENT
  Age: 68 Year
  Sex: Female

DRUGS (1)
  1. CELESTAMINE TAB [Suspect]
     Indication: PRURITUS
     Dosage: PO
     Route: 048

REACTIONS (7)
  - ADDISON'S DISEASE [None]
  - ARTHROPATHY [None]
  - GLYCOSYLATED HAEMOGLOBIN INCREASED [None]
  - HYPERGLYCAEMIA [None]
  - HYPOGLYCAEMIA [None]
  - PNEUMONIA [None]
  - POST GASTRIC SURGERY SYNDROME [None]
